FAERS Safety Report 4383299-X (Version None)
Quarter: 2004Q2

REPORT INFORMATION
  Report Type: 
  Country: None (occurrence: None)
  Receive Date: 20040623
  Receipt Date: 20040615
  Transmission Date: 20050107
  Serious: Yes (Death, Hospitalization)
  Sender: FDA-Public Use
  Company Number: FR-BRISTOL-MYERS SQUIBB COMPANY-12616165

PATIENT
  Age: 66 Year
  Sex: Male

DRUGS (3)
  1. UFT [Suspect]
     Route: 048
     Dates: start: 20040301, end: 20040416
  2. CARBOPLATIN [Suspect]
     Route: 042
     Dates: start: 20040301, end: 20040416
  3. ACTISKENAN [Concomitant]

REACTIONS (4)
  - LUNG DISORDER [None]
  - PANCYTOPENIA [None]
  - SEPSIS [None]
  - SHOCK [None]
